FAERS Safety Report 6582579-7 (Version None)
Quarter: 2010Q1

REPORT INFORMATION
  Report Type: 
  Country: None (occurrence: None)
  Receive Date: 20100216
  Receipt Date: 20100116
  Transmission Date: 20100710
  Serious: No
  Sender: FDA-Public Use
  Company Number: US-BAYER-201013108GPV

PATIENT
  Age: 62 Year
  Sex: Male

DRUGS (3)
  1. SORAFENIB [Suspect]
  2. CAPECITABINE [Concomitant]
     Indication: HEPATIC NEOPLASM MALIGNANT NON-RESECTABLE
  3. BROAD SPECTRUM ANTIBIOTICS [Concomitant]
     Indication: PERITONITIS BACTERIAL

REACTIONS (1)
  - RASH [None]
